FAERS Safety Report 10994613 (Version 1)
Quarter: 2015Q2

REPORT INFORMATION
  Report Type: Spontaneous
  Country: US (occurrence: US)
  Receive Date: 20150407
  Receipt Date: 20150407
  Transmission Date: 20150821
  Serious: Yes (Death)
  Sender: FDA-Public Use
  Company Number: US-ASTRAZENECA-2013SE86721

PATIENT
  Age: 23241 Day
  Sex: Male

DRUGS (19)
  1. ATENOLOL. [Concomitant]
     Active Substance: ATENOLOL
     Dates: start: 20110227
  2. BYETTA [Suspect]
     Active Substance: EXENATIDE
     Indication: TYPE 2 DIABETES MELLITUS
     Dosage: UNK
     Route: 065
     Dates: start: 20090317
  3. PREDNISONE. [Concomitant]
     Active Substance: PREDNISONE
     Dates: start: 20110715
  4. MEGESTROL [Concomitant]
     Active Substance: MEGESTROL
     Dates: start: 20111029
  5. NEXIUM [Concomitant]
     Active Substance: ESOMEPRAZOLE MAGNESIUM
     Dates: start: 20111028
  6. XANAX [Concomitant]
     Active Substance: ALPRAZOLAM
     Dates: start: 20111028
  7. NAPROXEN. [Concomitant]
     Active Substance: NAPROXEN
     Dosage: BID WITH FOOD
     Route: 065
  8. LEVAQUIN [Concomitant]
     Active Substance: LEVOFLOXACIN
     Dates: start: 20110110
  9. CHANTIX [Concomitant]
     Active Substance: VARENICLINE TARTRATE
     Dates: start: 20100508
  10. PRILOSEC [Concomitant]
     Active Substance: OMEPRAZOLE MAGNESIUM
     Dosage: 20 MG
  11. GLUCOPHAGE [Concomitant]
     Active Substance: METFORMIN HYDROCHLORIDE
  12. BYETTA [Suspect]
     Active Substance: EXENATIDE
     Indication: TYPE 2 DIABETES MELLITUS
     Dosage: UNK
     Route: 065
     Dates: start: 2009, end: 201107
  13. BYETTA [Suspect]
     Active Substance: EXENATIDE
     Indication: TYPE 2 DIABETES MELLITUS
     Dosage: 5 MCG
     Route: 065
     Dates: start: 20110809
  14. LISINOPRIL. [Concomitant]
     Active Substance: LISINOPRIL
     Dates: start: 20101004
  15. SPIRIVA [Concomitant]
     Active Substance: TIOTROPIUM BROMIDE MONOHYDRATE
  16. COMBIVENT [Concomitant]
     Active Substance: ALBUTEROL SULFATE\IPRATROPIUM BROMIDE
  17. MELOXICAM. [Concomitant]
     Active Substance: MELOXICAM
     Dates: start: 20111028
  18. SYMBICORT [Concomitant]
     Active Substance: BUDESONIDE\FORMOTEROL FUMARATE DIHYDRATE
     Dosage: 160 MCG-4.5 MCG, TWO TIMES A DAY
     Dates: start: 20111028
  19. BETAMETHASONE [Concomitant]
     Active Substance: BETAMETHASONE
     Dates: start: 20100412

REACTIONS (1)
  - Adenocarcinoma pancreas [Fatal]

NARRATIVE: CASE EVENT DATE: 20110726
